FAERS Safety Report 14294923 (Version 2)
Quarter: 2018Q1

REPORT INFORMATION
  Report Type: Spontaneous
  Country: IT (occurrence: IT)
  Receive Date: 20171218
  Receipt Date: 20180111
  Transmission Date: 20180509
  Serious: Yes (Other)
  Sender: FDA-Public Use
  Company Number: IT-CIPLA LTD.-2017IT26933

PATIENT

DRUGS (2)
  1. GEMCITABINE [Suspect]
     Active Substance: GEMCITABINE\GEMCITABINE HYDROCHLORIDE
     Indication: OVARIAN CANCER
     Dosage: 1200 MG, CYCLICAL
     Route: 042
     Dates: start: 20171016, end: 20171016
  2. CARBOPLATIN. [Suspect]
     Active Substance: CARBOPLATIN
     Indication: OVARIAN CANCER
     Dosage: 400 MG, CYCLICAL
     Route: 042
     Dates: start: 20171016, end: 20171016

REACTIONS (6)
  - Thrombocytopenia [Unknown]
  - Presyncope [Unknown]
  - Pyrexia [Unknown]
  - Asthenia [Unknown]
  - Abdominal pain [Unknown]
  - Hypocalcaemia [Unknown]

NARRATIVE: CASE EVENT DATE: 20171023
